FAERS Safety Report 5997958-6 (Version None)
Quarter: 2008Q4

REPORT INFORMATION
  Report Type: 
  Country: None (occurrence: None)
  Receive Date: 20081211
  Receipt Date: 20081201
  Transmission Date: 20090506
  Serious: Yes (Life-Threatening)
  Sender: FDA-Public Use
  Company Number: GXKR2008US11463

PATIENT
  Sex: Male

DRUGS (5)
  1. PENICILLIN G [Suspect]
     Dosage: MATERNAL DOSE: 5000000 IU, TRANSPLACENTAL
     Route: 064
  2. EPINEPHRINE [Suspect]
     Dosage: MATERNAL DOSE:  100, 300, 600 UG AT 2-3 MIN INTERVALS, TRANSPLACENTAL
     Route: 064
  3. DIPHENHYDRAMINE HCL [Concomitant]
  4. ETOMIDATE [Concomitant]
  5. EPHEDRINE HCL 1PC SOL [Concomitant]

REACTIONS (14)
  - APGAR SCORE LOW [None]
  - BLOOD PH DECREASED [None]
  - BRADYCARDIA FOETAL [None]
  - CAESAREAN SECTION [None]
  - CONVULSION NEONATAL [None]
  - DEVELOPMENTAL DELAY [None]
  - DYSPHAGIA [None]
  - FOETAL DISTRESS SYNDROME [None]
  - HYPOTONIA [None]
  - HYPOXIC ENCEPHALOPATHY [None]
  - INFANTILE APNOEIC ATTACK [None]
  - MATERNAL DRUGS AFFECTING FOETUS [None]
  - NEUROLOGICAL SYMPTOM [None]
  - POOR SUCKING REFLEX [None]
